FAERS Safety Report 6565609-8 (Version None)
Quarter: 2010Q1

REPORT INFORMATION
  Report Type: 
  Country: None (occurrence: None)
  Receive Date: 20100201
  Receipt Date: 20100128
  Transmission Date: 20100710
  Serious: Yes (Other)
  Sender: FDA-Public Use
  Company Number: AU-RB-001401-10

PATIENT
  Age: 80 Year
  Sex: Female

DRUGS (2)
  1. NORSPAN NOS [Suspect]
     Indication: DRUG USE FOR UNKNOWN INDICATION
     Dosage: DOSING INFORMATION UNKNOWN
     Route: 062
  2. DURAGESIC-100 [Suspect]
     Indication: DRUG USE FOR UNKNOWN INDICATION
     Dosage: 50 MICROGRAM PER HOUR
     Route: 062
     Dates: start: 20081121

REACTIONS (1)
  - LOSS OF CONSCIOUSNESS [None]
